FAERS Safety Report 17033978 (Version 1)
Quarter: 2019Q4

REPORT INFORMATION
  Report Type: Spontaneous
  Country: None (occurrence: US)
  Receive Date: 20191114
  Receipt Date: 20191114
  Transmission Date: 20200122
  Serious: Yes (Other)
  Sender: FDA-Public Use
  Company Number: US-P+L DEVELOPMENT, LLC-2076874

PATIENT
  Sex: Female

DRUGS (1)
  1. STOOL SOFTENER WITH A LAXATIVE (DOCUSATE SODIUM\SENNOSIDES) [Suspect]
     Active Substance: DOCUSATE SODIUM\SENNOSIDES

REACTIONS (1)
  - Faecaloma [None]
